FAERS Safety Report 15011149 (Version 1)
Quarter: 2018Q2

REPORT INFORMATION
  Report Type: Spontaneous
  Country: US (occurrence: US)
  Receive Date: 20180529
  Receipt Date: 20180529
  Transmission Date: 20180711
  Serious: No
  Sender: FDA-Public Use
  Company Number: None

PATIENT
  Age: 56 Year
  Sex: Female
  Weight: 66.6 kg

DRUGS (1)
  1. MELOXICAM 7.5 MG [Suspect]
     Active Substance: MELOXICAM
     Indication: ARTHRITIS
     Dosage: ?          QUANTITY:1 TABLET(S);?
     Route: 048
     Dates: start: 20180502, end: 20180523

REACTIONS (4)
  - Drug ineffective [None]
  - Pain in extremity [None]
  - Inflammation [None]
  - Product substitution issue [None]

NARRATIVE: CASE EVENT DATE: 20180520
